FAERS Safety Report 16471158 (Version 1)
Quarter: 2019Q2

REPORT INFORMATION
  Report Type: Spontaneous
  Country: PL (occurrence: PL)
  Receive Date: 20190624
  Receipt Date: 20190624
  Transmission Date: 20190711
  Serious: Yes (Death)
  Sender: FDA-Public Use
  Company Number: PL-EXELIXIS-CABO-19021933

PATIENT
  Age: 56 Year
  Sex: Female

DRUGS (1)
  1. CABOMETYX [Suspect]
     Active Substance: CABOZANTINIB S-MALATE
     Indication: RENAL CANCER
     Dosage: UNK

REACTIONS (12)
  - Aspartate aminotransferase increased [Unknown]
  - Mucosal inflammation [Unknown]
  - Asthenia [Unknown]
  - Decreased appetite [Unknown]
  - Alanine aminotransferase increased [Unknown]
  - Jaw disorder [Unknown]
  - Death [Fatal]
  - Depressed mood [Unknown]
  - Palmar-plantar erythrodysaesthesia syndrome [Unknown]
  - Blood thyroid stimulating hormone increased [Unknown]
  - Sputum retention [Unknown]
  - Hypertension [Unknown]
